FAERS Safety Report 17601206 (Version 1)
Quarter: 2020Q1

REPORT INFORMATION
  Report Type: Report from Study
  Country: US (occurrence: US)
  Receive Date: 20200331
  Receipt Date: 20200331
  Transmission Date: 20200409
  Serious: Yes (Other)
  Sender: FDA-Public Use
  Company Number: US-AUROBINDO-AUR-APL-2020-015904

PATIENT
  Age: 20 Year
  Sex: Male
  Weight: 53 kg

DRUGS (1)
  1. POLYMYXIN B. [Suspect]
     Active Substance: POLYMYXIN B
     Indication: CYSTIC FIBROSIS
     Dosage: 15 MILLIGRAM/KILOGRAM, TWO TIMES A DAY, 800 000 Q12H
     Route: 042

REACTIONS (2)
  - Hypoaesthesia oral [Recovered/Resolved]
  - Neurotoxicity [Unknown]
